FAERS Safety Report 18939597 (Version 1)
Quarter: 2021Q1

REPORT INFORMATION
  Report Type: Spontaneous
  Country: CH (occurrence: CH)
  Receive Date: 20210224
  Receipt Date: 20210224
  Transmission Date: 20210420
  Serious: Yes (Hospitalization, Other)
  Sender: FDA-Public Use
  Company Number: CH-PFIZER INC-2021168557

PATIENT
  Age: 57 Year
  Sex: Female
  Weight: 90 kg

DRUGS (16)
  1. TAXOL [Suspect]
     Active Substance: PACLITAXEL
     Dosage: 1 DF (IN TOTAL)
     Dates: start: 20201230, end: 20201230
  2. PARAPLATIN [Suspect]
     Active Substance: CARBOPLATIN
     Dosage: 1 DF (IN TOTAL)
     Dates: start: 20201216, end: 20201216
  3. NEULASTA [Suspect]
     Active Substance: PEGFILGRASTIM
     Dosage: 1 DF (IN TOTAL)
     Dates: start: 20210106, end: 20210106
  4. AKYNZEO [Suspect]
     Active Substance: NETUPITANT\PALONOSETRON HYDROCHLORIDE
     Dosage: 1 DF, CYCLIC
     Dates: start: 202012, end: 202101
  5. PANTOPRAZOLE [Suspect]
     Active Substance: PANTOPRAZOLE
     Dosage: 1 DF, CYCLIC
     Dates: start: 202012, end: 202101
  6. TEMESTA (LORAZEPAM) [Suspect]
     Active Substance: LORAZEPAM
     Dosage: 1 DF, CYCLIC
     Dates: start: 202012, end: 202101
  7. TAXOL [Suspect]
     Active Substance: PACLITAXEL
     Dosage: 1 DF (IN TOTAL)
     Dates: start: 20201223, end: 20201223
  8. TAXOL [Suspect]
     Active Substance: PACLITAXEL
     Dosage: 1 DF (IN TOTAL)
     Dates: start: 20201216, end: 20201216
  9. ADRIBLASTIN [Suspect]
     Active Substance: DOXORUBICIN HYDROCHLORIDE
     Indication: BREAST CANCER
     Dosage: 1 DF (IN TOTAL)
     Dates: start: 20210106, end: 20210106
  10. KEYTRUDA [Suspect]
     Active Substance: PEMBROLIZUMAB
     Dosage: 1 DF (IN TOTAL)
     Dates: start: 20201216, end: 20201216
  11. KEYTRUDA [Suspect]
     Active Substance: PEMBROLIZUMAB
     Dosage: 1 DF (IN TOTAL)
     Dates: start: 20210106, end: 20210106
  12. ENDOXAN [CYCLOPHOSPHAMIDE MONOHYDRATE] [Suspect]
     Active Substance: CYCLOPHOSPHAMIDE
     Dosage: 1 DF (IN TOTAL)
     Dates: start: 20210106, end: 20210106
  13. DAFALGAN [Suspect]
     Active Substance: ACETAMINOPHEN
     Dosage: 1 DF (IN TOTAL)
     Route: 048
     Dates: start: 202101, end: 202101
  14. DEXAMETHASON [DEXAMETHASONE] [Concomitant]
     Active Substance: DEXAMETHASONE
     Dosage: 1 DF
     Dates: start: 202012, end: 202101
  15. TAXOL [Suspect]
     Active Substance: PACLITAXEL
     Dosage: 1 DF (IN TOTAL)
     Dates: start: 20210112, end: 20210112
  16. TAVEGYL [Suspect]
     Active Substance: CLEMASTINE FUMARATE
     Dosage: 1 DF, CYCLIC
     Dates: start: 202012, end: 202101

REACTIONS (2)
  - SJS-TEN overlap [Recovering/Resolving]
  - Lichen planus [Recovering/Resolving]

NARRATIVE: CASE EVENT DATE: 20210112
